FAERS Safety Report 24666089 (Version 1)
Quarter: 2024Q4

REPORT INFORMATION
  Report Type: Spontaneous
  Country: US (occurrence: US)
  Receive Date: 20241126
  Receipt Date: 20241126
  Transmission Date: 20250114
  Serious: No
  Sender: UROGEN PHARMA
  Company Number: US-UROGEN PHARMA LTD.-2024-UGN-000147

PATIENT

DRUGS (4)
  1. JELMYTO [Suspect]
     Active Substance: MITOMYCIN
     Indication: Transitional cell cancer of the renal pelvis and ureter
     Dosage: 8 MILLILITER (INSTILLATION)
     Dates: start: 20240903, end: 20240903
  2. JELMYTO [Suspect]
     Active Substance: MITOMYCIN
     Indication: Malignant neoplasm of renal pelvis
     Dosage: 8 MILLILITER  (INSTILLATION)
     Dates: start: 20240917, end: 20240917
  3. JELMYTO [Suspect]
     Active Substance: MITOMYCIN
     Dosage: 8 MILLILITER  (INSTILLATION)
     Dates: start: 20240924, end: 20240924
  4. JELMYTO [Suspect]
     Active Substance: MITOMYCIN
     Dosage: 8 MILLILITER  (INSTILLATION)
     Dates: start: 20241008, end: 20241008

REACTIONS (5)
  - Gastrointestinal pain [Recovered/Resolved]
  - Post procedural complication [Unknown]
  - Abdominal pain [Recovered/Resolved]
  - Abdominal pain [Recovered/Resolved]
  - Lymphocyte count decreased [Unknown]

NARRATIVE: CASE EVENT DATE: 20240901
